FAERS Safety Report 5573847-6 (Version None)
Quarter: 2007Q4

REPORT INFORMATION
  Report Type: 
  Country: None (occurrence: None)
  Receive Date: 20071226
  Receipt Date: 20071214
  Transmission Date: 20080405
  Serious: Yes (Other)
  Sender: FDA-Public Use
  Company Number: US-PFIZER INC-2007099208

PATIENT
  Sex: Female
  Weight: 56.7 kg

DRUGS (21)
  1. CHANTIX [Interacting]
     Indication: SMOKING CESSATION THERAPY
     Route: 048
     Dates: start: 20071023, end: 20071116
  2. PREDNISONE [Suspect]
  3. DRUG, UNSPECIFIED [Interacting]
  4. PHENOBARBITAL TAB [Concomitant]
  5. ACETYLSALICYLIC ACID SRT [Concomitant]
  6. OXYCODONE HCL [Concomitant]
  7. RELPAX [Concomitant]
  8. VALIUM [Concomitant]
  9. LEXAPRO [Concomitant]
  10. MAGNESIUM [Concomitant]
     Indication: MINERAL SUPPLEMENTATION
  11. PRILOSEC [Concomitant]
  12. ADVAIR DISKUS 100/50 [Concomitant]
  13. SPIRIVA [Concomitant]
  14. TRIAMCINOLONE [Concomitant]
  15. OXYGEN [Concomitant]
  16. ALBUTEROL [Concomitant]
  17. ATROVENT [Concomitant]
  18. QVAR 40 [Concomitant]
  19. OTHER RESPIRATORY SYSTEM PRODUCTS [Concomitant]
  20. IBUPROFEN [Concomitant]
  21. BENADRYL [Concomitant]

REACTIONS (7)
  - CONVULSION [None]
  - DRUG INTERACTION [None]
  - FACIAL PALSY [None]
  - MIGRAINE [None]
  - NERVOUS SYSTEM DISORDER [None]
  - SUICIDAL IDEATION [None]
  - TRANSIENT ISCHAEMIC ATTACK [None]
